FAERS Safety Report 5621790-6 (Version None)
Quarter: 2008Q1

REPORT INFORMATION
  Report Type: 
  Country: None (occurrence: None)
  Receive Date: 20080211
  Receipt Date: 20080130
  Transmission Date: 20080703
  Serious: Yes (Hospitalization)
  Sender: FDA-Public Use
  Company Number: US-WYE-H02370908

PATIENT
  Sex: Male
  Weight: 98.6 kg

DRUGS (10)
  1. TYGACIL [Suspect]
     Indication: DECUBITUS ULCER
     Route: 042
     Dates: start: 20080101, end: 20080115
  2. TYGACIL [Suspect]
     Indication: INFECTION
  3. SEROQUEL [Concomitant]
     Route: 065
  4. CELEXA [Concomitant]
     Route: 065
  5. METOPROLOL TARTRATE [Suspect]
     Route: 065
  6. FOLATE SODIUM [Concomitant]
     Dosage: UNKNOWN
     Route: 065
  7. PROTONIX [Concomitant]
     Route: 065
  8. ASPIRIN [Concomitant]
     Dosage: UNKNOWN
     Route: 065
  9. ULTRAM [Suspect]
     Route: 065
  10. ZOCOR [Concomitant]
     Route: 065

REACTIONS (8)
  - ARTERIOSCLEROSIS [None]
  - BLOOD CREATININE INCREASED [None]
  - GLOMERULOSCLEROSIS [None]
  - INTERCAPILLARY GLOMERULOSCLEROSIS [None]
  - KIDNEY FIBROSIS [None]
  - NEPHRITIS INTERSTITIAL [None]
  - RENAL TUBULAR ATROPHY [None]
  - RENAL TUBULAR DISORDER [None]
